FAERS Safety Report 8459780-0 (Version None)
Quarter: 2012Q2

REPORT INFORMATION
  Report Type: 
  Country: None (occurrence: None)
  Receive Date: 20120622
  Receipt Date: 20120613
  Transmission Date: 20120825
  Serious: Yes (Hospitalization, Disabling, Other)
  Sender: FDA-Public Use
  Company Number: US-MERCK-1201USA02281

PATIENT
  Age: 68 Year
  Sex: Female
  Weight: 70 kg

DRUGS (2)
  1. FOSAMAX [Suspect]
     Indication: OSTEOPOROSIS
     Route: 048
     Dates: start: 19980101, end: 20080101
  2. FOSAMAX [Suspect]
     Route: 048

REACTIONS (26)
  - OSTEOPENIA [None]
  - INSOMNIA [None]
  - DIVERTICULUM [None]
  - PELVIC FRACTURE [None]
  - MITRAL VALVE REPAIR [None]
  - HEART VALVE INCOMPETENCE [None]
  - ANAEMIA [None]
  - CARDIAC DISORDER [None]
  - RESTLESS LEGS SYNDROME [None]
  - FEMUR FRACTURE [None]
  - SPINAL COLUMN STENOSIS [None]
  - DIVERTICULITIS [None]
  - CONSTIPATION [None]
  - DENTAL IMPLANTATION [None]
  - BREAST DISORDER [None]
  - HYPOKALAEMIA [None]
  - HYPERTENSION [None]
  - BASAL CELL CARCINOMA [None]
  - POST PROCEDURAL HAEMORRHAGE [None]
  - OVARIAN DISORDER [None]
  - OSTEOARTHRITIS [None]
  - MEGACOLON [None]
  - SCIATICA [None]
  - JOINT DISLOCATION [None]
  - HUMERUS FRACTURE [None]
  - LEUKOCYTOSIS [None]
